FAERS Safety Report 5767505-2 (Version None)
Quarter: 2008Q2

REPORT INFORMATION
  Report Type: 
  Country: None (occurrence: None)
  Receive Date: 20080611
  Receipt Date: 20080611
  Transmission Date: 20081010
  Serious: Yes (Hospitalization)
  Sender: FDA-Public Use
  Company Number: None

PATIENT
  Age: 67 Year
  Sex: Male
  Weight: 77.1 kg

DRUGS (2)
  1. SALSALATE [Suspect]
     Indication: PAIN
     Dosage: 1000 MG TID PO
     Route: 048
     Dates: start: 20040513, end: 20080530
  2. TRAMADOL HCL [Suspect]
     Indication: PAIN
     Dosage: 50 MG PRN PO
     Route: 048
     Dates: start: 20080408, end: 20080530

REACTIONS (1)
  - RENAL FAILURE ACUTE [None]
